FAERS Safety Report 13251880 (Version 1)
Quarter: 2017Q1

REPORT INFORMATION
  Report Type: Spontaneous
  Country: US (occurrence: US)
  Receive Date: 20170220
  Receipt Date: 20170220
  Transmission Date: 20170428
  Serious: No
  Sender: FDA-Public Use
  Company Number: US-TEVA-739394ACC

PATIENT
  Sex: Female

DRUGS (8)
  1. COPAXONE [Suspect]
     Active Substance: GLATIRAMER ACETATE
     Indication: MULTIPLE SCLEROSIS
     Route: 058
     Dates: start: 20140515
  2. TIZANIDINE. [Concomitant]
     Active Substance: TIZANIDINE
  3. TRAZODONE [Concomitant]
     Active Substance: TRAZODONE HYDROCHLORIDE
  4. WELLBUTRIN [Concomitant]
     Active Substance: BUPROPION HYDROCHLORIDE
  5. RITALIN [Concomitant]
     Active Substance: METHYLPHENIDATE HYDROCHLORIDE
  6. BACLOFEN. [Concomitant]
     Active Substance: BACLOFEN
  7. GABAPENTIN. [Concomitant]
     Active Substance: GABAPENTIN
  8. XANAX [Concomitant]
     Active Substance: ALPRAZOLAM

REACTIONS (4)
  - Induration [Unknown]
  - Headache [Unknown]
  - Pain in extremity [Unknown]
  - Fall [Unknown]
